FAERS Safety Report 4631263-5 (Version None)
Quarter: 2005Q2

REPORT INFORMATION
  Report Type: 
  Country: None (occurrence: None)
  Receive Date: 20050407
  Receipt Date: 20050407
  Transmission Date: 20051028
  Serious: Yes (Other)
  Sender: FDA-Public Use
  Company Number: None

PATIENT
  Age: 76 Year
  Sex: Female
  Weight: 65.318 kg

DRUGS (1)
  1. TRANDATE [Suspect]
     Dosage: 200 MG 2X DAILY

REACTIONS (9)
  - AGITATION [None]
  - ARRHYTHMIA [None]
  - ASTHENIA [None]
  - CONSTIPATION [None]
  - DIZZINESS [None]
  - DRY MOUTH [None]
  - NAUSEA [None]
  - RASH PRURITIC [None]
  - SOMNOLENCE [None]
